FAERS Safety Report 21121170 (Version 1)
Quarter: 2022Q3

REPORT INFORMATION
  Report Type: Report from Study
  Country: US (occurrence: US)
  Receive Date: 20220722
  Receipt Date: 20220722
  Transmission Date: 20221027
  Serious: No
  Sender: FDA-Public Use
  Company Number: US-MIRM-000477

PATIENT
  Age: 1 Year
  Sex: Female
  Weight: 7.257 kg

DRUGS (6)
  1. LIVMARLI [Suspect]
     Active Substance: MARALIXIBAT CHLORIDE
     Indication: Pruritus
     Route: 048
     Dates: start: 20220608
  2. 4323134 (GLOBALC3Sep19): DEKAs plus [Concomitant]
     Indication: Product used for unknown indication
  3. 1325453 (GLOBALC3Sep19): Citric acid [Concomitant]
     Indication: Product used for unknown indication
  4. 2930039 (GLOBALC3Sep19): Hydroxyzine [Concomitant]
     Indication: Product used for unknown indication
  5. 1328139 (GLOBALC3Sep19): Rifampin [Concomitant]
     Indication: Product used for unknown indication
  6. 1328777 (GLOBALC3Sep19): Ursodiol [Concomitant]
     Indication: Product used for unknown indication

REACTIONS (1)
  - Vomiting [Unknown]

NARRATIVE: CASE EVENT DATE: 20220611
